FAERS Safety Report 20515356 (Version 1)
Quarter: 2022Q1

REPORT INFORMATION
  Report Type: Spontaneous
  Country: US (occurrence: US)
  Receive Date: 20220224
  Receipt Date: 20220224
  Transmission Date: 20220423
  Serious: No
  Sender: FDA-Public Use
  Company Number: US-LANTHEUS-LMI-2021-00612

PATIENT
  Age: 64 Year
  Sex: Male
  Weight: 106 kg

DRUGS (1)
  1. DEFINITY [Suspect]
     Active Substance: PERFLUTREN
     Indication: Stress echocardiogram
     Dosage: 5 ML (1.5 ML DEFINITY PREPARED IN 8.5 ML DILUENT)
     Route: 042
     Dates: start: 20210610, end: 20210610

REACTIONS (2)
  - Neck pain [Recovered/Resolved]
  - Back pain [Recovered/Resolved]

NARRATIVE: CASE EVENT DATE: 20210610
